FAERS Safety Report 6766868-9 (Version None)
Quarter: 2010Q2

REPORT INFORMATION
  Report Type: 
  Country: None (occurrence: None)
  Receive Date: 20100609
  Receipt Date: 20100601
  Transmission Date: 20101027
  Serious: Yes (Death)
  Sender: FDA-Public Use
  Company Number: 230073K08CAN

PATIENT
  Sex: Female

DRUGS (14)
  1. REBIF [Suspect]
     Indication: SECONDARY PROGRESSIVE MULTIPLE SCLEROSIS
     Dosage: 44 MCG, 3 IN 1 WK;
     Dates: start: 20051124
  2. CLOBAZAM [Concomitant]
  3. POPIRAMATE (TOPIRAMATE) [Concomitant]
  4. ALENDRONATE SODIUM [Concomitant]
  5. OXAZEPAM [Concomitant]
  6. LORAZEPAM [Concomitant]
  7. OXYBUTYNIN CHLORIDE (OXYBUTYNIN HYDROCHLORIDE) [Concomitant]
  8. BUPROPION HYDROCHLORIDE [Concomitant]
  9. BONEPEZIL HCL (DONEPEZIL HYDROCHLORIDE) [Concomitant]
  10. TYLENOL #3 (COTYLENOL) [Concomitant]
  11. POTASSIUM CHLORIDE [Concomitant]
  12. CITALOPRAM HYDROBROMIDE [Concomitant]
  13. FOLIC ACID [Concomitant]
  14. TIOTTROPOIUM BROMIDE MONOHYDRATE (TIOTROPIUM BROMIDE) [Concomitant]

REACTIONS (3)
  - AORTIC RUPTURE [None]
  - HANGOVER [None]
  - HEADACHE [None]
